FAERS Safety Report 16535907 (Version 2)
Quarter: 2020Q2

REPORT INFORMATION
  Report Type: Report from Study
  Country: US (occurrence: US)
  Receive Date: 20190705
  Receipt Date: 20200512
  Transmission Date: 20200713
  Serious: Yes (Other)
  Sender: FDA-Public Use
  Company Number: PHEH2019US028059

PATIENT
  Sex: Male

DRUGS (1)
  1. ENTRESTO [Suspect]
     Active Substance: SACUBITRIL\VALSARTAN
     Indication: PRODUCT USED FOR UNKNOWN INDICATION
     Route: 048

REACTIONS (6)
  - Diabetes mellitus [Unknown]
  - Gait disturbance [Unknown]
  - Nephrolithiasis [Unknown]
  - Neoplasm malignant [Unknown]
  - Visual impairment [Unknown]
  - Neuropathy peripheral [Unknown]
